FAERS Safety Report 14274561 (Version 1)
Quarter: 2017Q4

REPORT INFORMATION
  Report Type: Spontaneous
  Country: FR (occurrence: FR)
  Receive Date: 20171211
  Receipt Date: 20171211
  Transmission Date: 20180321
  Serious: Yes (Life-Threatening, Hospitalization, Other)
  Sender: FDA-Public Use
  Company Number: FR-OTSUKA-2016_005065

PATIENT
  Age: 58 Year
  Sex: Male

DRUGS (1)
  1. ABILIFY [Suspect]
     Active Substance: ARIPIPRAZOLE
     Indication: PRODUCT USED FOR UNKNOWN INDICATION
     Dosage: 5 MG, QD
     Route: 048
     Dates: end: 20151223

REACTIONS (7)
  - Hyperglycaemia [Recovered/Resolved]
  - Pulmonary embolism [Unknown]
  - Prescribed underdose [Unknown]
  - Pancreatitis [Recovered/Resolved]
  - Ketoacidosis [Recovered/Resolved]
  - Septic shock [Unknown]
  - Tracheostomy [Unknown]

NARRATIVE: CASE EVENT DATE: 20151202
